FAERS Safety Report 9104875 (Version 1)
Quarter: 2013Q1

REPORT INFORMATION
  Report Type: Spontaneous
  Country: US (occurrence: US)
  Receive Date: 20130220
  Receipt Date: 20130220
  Transmission Date: 20140127
  Serious: Yes (Other)
  Sender: FDA-Public Use
  Company Number: US-BAYER-2013-020810

PATIENT
  Age: 35 Year
  Sex: Female
  Weight: 80.73 kg

DRUGS (5)
  1. YASMIN [Suspect]
     Indication: CONTRACEPTION
     Dosage: UNK
     Dates: start: 200709, end: 20091130
  2. MULTIVITAMIN [Concomitant]
     Indication: SUPPLEMENTATION THERAPY
     Dosage: DAILY
     Route: 048
  3. METHOCARBAMOL [Concomitant]
     Indication: MUSCLE SPASMS
     Dosage: 500 MG, EVERY 8 HOURS NEEDED
     Dates: start: 20091130
  4. IBUPROFEN [Concomitant]
     Indication: PAIN
     Dosage: 800 MG, EVERY 8
     Dates: start: 20091130
  5. MELOXICAM [Concomitant]
     Indication: PAIN
     Dosage: 15 MG, DAILY
     Dates: start: 20091130

REACTIONS (7)
  - Deep vein thrombosis [None]
  - Back pain [None]
  - Groin pain [None]
  - Oedema [None]
  - Skin discolouration [None]
  - Pelvic venous thrombosis [None]
  - Deep vein thrombosis [None]
